FAERS Safety Report 26012364 (Version 1)
Quarter: 2025Q4

REPORT INFORMATION
  Report Type: Spontaneous
  Country: CN (occurrence: CN)
  Receive Date: 20251107
  Receipt Date: 20251107
  Transmission Date: 20260118
  Serious: Yes (Hospitalization)
  Sender: PFIZER
  Company Number: CN-PFIZER INC-PV202500130486

PATIENT
  Age: 35 Year
  Sex: Female

DRUGS (1)
  1. METHOTREXATE SODIUM [Suspect]
     Active Substance: METHOTREXATE SODIUM
     Indication: Abortion induced
     Dosage: 30 MG, 1X/DAY
     Route: 030
     Dates: start: 20251001, end: 20251005

REACTIONS (5)
  - Rash [Recovering/Resolving]
  - Mouth ulceration [Recovering/Resolving]
  - Swelling of eyelid [Recovering/Resolving]
  - Conjunctival haemorrhage [Recovering/Resolving]
  - Off label use [Unknown]

NARRATIVE: CASE EVENT DATE: 20251001
